FAERS Safety Report 5448523-0 (Version None)
Quarter: 2007Q3

REPORT INFORMATION
  Report Type: 
  Country: None (occurrence: None)
  Receive Date: 20070905
  Receipt Date: 20070824
  Transmission Date: 20080115
  Serious: Yes (Other)
  Sender: FDA-Public Use
  Company Number: GXKR2007US07357

PATIENT
  Age: 50 Year
  Sex: Male

DRUGS (4)
  1. CEFAZOLIN [Suspect]
     Indication: PROPHYLAXIS
     Dosage: 1 G, INTRAVENOUS; 1 G, TID, INTRAVENOUS; 1 G, INTRAVENOUS
     Route: 042
  2. LOVENOX [Concomitant]
  3. MORPHINE SULFATE [Concomitant]
  4. ACETAMINOPHEN AND OXYCODONE HCL [Concomitant]

REACTIONS (1)
  - COOMBS POSITIVE HAEMOLYTIC ANAEMIA [None]
